FAERS Safety Report 7709566-7 (Version None)
Quarter: 2011Q3

REPORT INFORMATION
  Report Type: 
  Country: None (occurrence: None)
  Receive Date: 20110825
  Receipt Date: 20110817
  Transmission Date: 20111222
  Serious: Yes (Other)
  Sender: FDA-Public Use
  Company Number: US-BAYER-2011-023432

PATIENT
  Age: 33 Year
  Sex: Female
  Weight: 45 kg

DRUGS (3)
  1. DROSPIRENONE AND ETHINYL ESTRADIOL [Suspect]
     Dosage: UNK
     Route: 048
     Dates: start: 20081001, end: 20081201
  2. YAZ [Suspect]
     Dosage: UNK
     Route: 048
     Dates: start: 20070101, end: 20070701
  3. YASMIN [Suspect]
     Dosage: UNK
     Route: 048
     Dates: start: 20060101, end: 20071201

REACTIONS (10)
  - DIARRHOEA [None]
  - SCAR [None]
  - CONSTIPATION [None]
  - DEPRESSION [None]
  - ANXIETY [None]
  - FLATULENCE [None]
  - GALLBLADDER DISORDER [None]
  - ABDOMINAL DISTENSION [None]
  - DYSPEPSIA [None]
  - INJURY [None]
